FAERS Safety Report 18914963 (Version 1)
Quarter: 2021Q1

REPORT INFORMATION
  Report Type: Spontaneous
  Country: US (occurrence: US)
  Receive Date: 20210218
  Receipt Date: 20210218
  Transmission Date: 20210420
  Serious: Yes (Death)
  Sender: FDA-Public Use
  Company Number: None

PATIENT
  Age: 77 Year
  Sex: Male

DRUGS (1)
  1. BOTOX TOXIN TYPE A 100 U/VL NONE [Suspect]
     Active Substance: BOTULINUM TOXIN TYPE A
     Indication: SALIVA ALTERED
     Dosage: ?          OTHER DOSE:UP TOO 100 UNITS;OTHER FREQUENCY:EVERY 90 DAYS;OTHER ROUTE:IM?
     Dates: start: 202003

REACTIONS (1)
  - Death [None]

NARRATIVE: CASE EVENT DATE: 20210109
